FAERS Safety Report 12434115 (Version 1)
Quarter: 2016Q2

REPORT INFORMATION
  Report Type: Spontaneous
  Country: US (occurrence: US)
  Receive Date: 20160603
  Receipt Date: 20160603
  Transmission Date: 20160815
  Serious: Yes (Hospitalization, Other)
  Sender: FDA-Public Use
  Company Number: US-DSJP-DSU-2015-122804

PATIENT
  Age: 57 Year
  Sex: Male
  Weight: 96.6 kg

DRUGS (2)
  1. BENICAR HCT [Suspect]
     Active Substance: HYDROCHLOROTHIAZIDE\OLMESARTAN MEDOXOMIL
     Indication: HYPERTENSION
     Dosage: 40/12.5 MG
     Dates: start: 200603, end: 200711
  2. BENICAR [Suspect]
     Active Substance: OLMESARTAN MEDOXOMIL
     Indication: PRODUCT USED FOR UNKNOWN INDICATION
     Dosage: UNK
     Dates: start: 2005

REACTIONS (11)
  - Renal failure [Unknown]
  - Barrett^s oesophagus [Unknown]
  - Lymphocytosis [Unknown]
  - Paraesthesia [Unknown]
  - Gastroenteritis [Unknown]
  - Coeliac disease [Unknown]
  - Polyp [Unknown]
  - Anaemia [Unknown]
  - Malabsorption [Unknown]
  - Large intestine benign neoplasm [Unknown]
  - Acidosis [Unknown]

NARRATIVE: CASE EVENT DATE: 2007
